FAERS Safety Report 12769032 (Version 1)
Quarter: 2016Q3

REPORT INFORMATION
  Report Type: Spontaneous
  Country: GB (occurrence: GB)
  Receive Date: 20160921
  Receipt Date: 20160921
  Transmission Date: 20161109
  Serious: Yes (Hospitalization)
  Sender: FDA-Public Use
  Company Number: GB-WARNER CHILCOTT, LLC-1057541

PATIENT
  Age: 84 Year
  Sex: Female

DRUGS (1)
  1. ASACOL [Suspect]
     Active Substance: MESALAMINE
     Route: 067

REACTIONS (2)
  - Incorrect route of drug administration [None]
  - Hospitalisation [None]
